FAERS Safety Report 4917157-6 (Version None)
Quarter: 2006Q1

REPORT INFORMATION
  Report Type: 
  Country: None (occurrence: None)
  Receive Date: 20060214
  Receipt Date: 20060125
  Transmission Date: 20060701
  Serious: Yes (Hospitalization)
  Sender: FDA-Public Use
  Company Number: DE200601002532

PATIENT
  Age: 65 Year
  Sex: Female
  Weight: 90 kg

DRUGS (2)
  1. YENTREVE(DULOXETINE HYDROCHLORIDE) CAPSULE [Suspect]
     Indication: URINARY INCONTINENCE
     Dosage: 40 MG, DAILY (1/D), ORAL
     Route: 048
     Dates: start: 20051101, end: 20060103
  2. BISOPROLOL (BISOPROLOL) [Concomitant]

REACTIONS (4)
  - DIARRHOEA [None]
  - HEPATOCELLULAR DAMAGE [None]
  - HEPATOTOXICITY [None]
  - INFLUENZA [None]
